FAERS Safety Report 15129611 (Version 1)
Quarter: 2018Q3

REPORT INFORMATION
  Report Type: Spontaneous
  Country: US (occurrence: US)
  Receive Date: 20180711
  Receipt Date: 20180711
  Transmission Date: 20181010
  Serious: Yes (Hospitalization)
  Sender: FDA-Public Use
  Company Number: US-SA-2018SA165590

PATIENT
  Age: 73 Year
  Sex: Female

DRUGS (2)
  1. PRALUENT [Suspect]
     Active Substance: ALIROCUMAB
     Dosage: 75 MG QOW
     Route: 058
  2. PRALUENT [Suspect]
     Active Substance: ALIROCUMAB
     Indication: BLOOD CHOLESTEROL
     Dosage: 75 MG, QOW
     Route: 058

REACTIONS (6)
  - Injection site induration [Unknown]
  - Blood cholesterol increased [Unknown]
  - Injection site pain [Unknown]
  - Blood triglycerides increased [Unknown]
  - Surgery [Unknown]
  - Injection site bruising [Unknown]
